FAERS Safety Report 5088982-9 (Version None)
Quarter: 2006Q3

REPORT INFORMATION
  Report Type: 
  Country: None (occurrence: None)
  Receive Date: 20060825
  Receipt Date: 20060816
  Transmission Date: 20061208
  Serious: Yes (Hospitalization)
  Sender: FDA-Public Use
  Company Number: PHRM2006FR02344

PATIENT
  Age: 75 Year
  Sex: Male

DRUGS (3)
  1. ZOMETA [Suspect]
     Indication: MULTIPLE MYELOMA
     Dosage: 4 MG, QMO
     Route: 042
     Dates: start: 20050309, end: 20060317
  2. DEXAMETHASONE [Concomitant]
     Indication: MULTIPLE MYELOMA
     Dosage: 40 MG/4 D EVERY 15 DAYS
     Dates: start: 20050301, end: 20050701
  3. DEXAMETHASONE [Concomitant]
     Dosage: 40 MG/D/4 D/MONTH
     Dates: start: 20050901

REACTIONS (12)
  - C-REACTIVE PROTEIN INCREASED [None]
  - OSTEITIS [None]
  - OSTEOARTHRITIS [None]
  - OSTEOMYELITIS [None]
  - OSTEONECROSIS [None]
  - OSTEOSCLEROSIS [None]
  - PAIN IN JAW [None]
  - RED BLOOD CELL SEDIMENTATION RATE INCREASED [None]
  - TEMPOROMANDIBULAR JOINT SYNDROME [None]
  - TOOTH EXTRACTION [None]
  - TOOTH INFECTION [None]
  - TRISMUS [None]
